FAERS Safety Report 24818637 (Version 1)
Quarter: 2025Q1

REPORT INFORMATION
  Report Type: Spontaneous
  Country: US (occurrence: US)
  Receive Date: 20250108
  Receipt Date: 20250108
  Transmission Date: 20250408
  Serious: No
  Sender: BIOCON
  Company Number: US-BIOCON-BCN-2025-000002

PATIENT
  Age: 60 Year
  Sex: Male
  Weight: 70 kg

DRUGS (7)
  1. TACROLIMUS [Suspect]
     Active Substance: TACROLIMUS
     Indication: Renal transplant
     Dosage: 1.5MG/DAY (1 MG IN MORNING AND 0.5 MG IN EVENING)
     Dates: start: 202409, end: 20241010
  2. TACROLIMUS [Suspect]
     Active Substance: TACROLIMUS
     Dosage: 1.5MG/DAY (1 MG IN MORNING AND 0.5 MG IN EVENING)
     Dates: start: 202409, end: 20241010
  3. TACROLIMUS [Suspect]
     Active Substance: TACROLIMUS
     Dosage: DOSAGE INCREASED TO 2 MG (1 MG IN MORNING AND 1 MG IN EVENING)
  4. PREDNISONE [Concomitant]
     Active Substance: PREDNISONE
     Indication: Renal transplant
     Dates: start: 200205
  5. FOSINOPRIL [Concomitant]
     Active Substance: FOSINOPRIL
     Indication: Prophylaxis
     Dates: start: 200205
  6. ATENOLOL [Concomitant]
     Active Substance: ATENOLOL
     Indication: Prophylaxis
     Dates: start: 200205
  7. EVEROLIMUS [Concomitant]
     Active Substance: EVEROLIMUS
     Indication: Renal transplant
     Dates: start: 202406

REACTIONS (2)
  - Drug level decreased [Recovered/Resolved]
  - Product substitution issue [Unknown]

NARRATIVE: CASE EVENT DATE: 20240909
